FAERS Safety Report 7108117-8 (Version None)
Quarter: 2010Q4

REPORT INFORMATION
  Report Type: 
  Country: None (occurrence: None)
  Receive Date: 20101117
  Receipt Date: 20101110
  Transmission Date: 20110411
  Serious: Yes (Death, Other)
  Sender: FDA-Public Use
  Company Number: CA-ELI_LILLY_AND_COMPANY-CA201007003253

PATIENT
  Age: 60 Year
  Sex: Male

DRUGS (1)
  1. ADCIRCA [Suspect]
     Indication: PULMONARY HYPERTENSION

REACTIONS (3)
  - DRUG INEFFECTIVE [None]
  - PULMONARY ARTERIAL HYPERTENSION [None]
  - RENAL FAILURE CHRONIC [None]
